FAERS Safety Report 18469745 (Version 7)
Quarter: 2021Q2

REPORT INFORMATION
  Report Type: Spontaneous
  Country: US (occurrence: US)
  Receive Date: 20201105
  Receipt Date: 20210601
  Transmission Date: 20210717
  Serious: Yes (Other)
  Sender: FDA-Public Use
  Company Number: US-PFIZER INC-2020427184

PATIENT
  Age: 76 Year
  Sex: Female

DRUGS (2)
  1. AMENA [Concomitant]
  2. INLYTA [Suspect]
     Active Substance: AXITINIB
     Dosage: 5 MG
     Dates: end: 20201101

REACTIONS (12)
  - Diarrhoea [Unknown]
  - Depressed mood [Unknown]
  - Illness [Unknown]
  - Constipation [Unknown]
  - Bipolar I disorder [Not Recovered/Not Resolved]
  - Fatigue [Recovering/Resolving]
  - Dry mouth [Unknown]
  - Stomatitis [Unknown]
  - Dizziness [Unknown]
  - Dysgeusia [Unknown]
  - Multiple allergies [Unknown]
  - Dyspnoea [Unknown]
